FAERS Safety Report 6395323-3 (Version None)
Quarter: 2009Q4

REPORT INFORMATION
  Report Type: 
  Country: None (occurrence: None)
  Receive Date: 20091009
  Receipt Date: 20091007
  Transmission Date: 20100525
  Serious: Yes (Hospitalization)
  Sender: FDA-Public Use
  Company Number: B0585810A

PATIENT
  Sex: Female

DRUGS (6)
  1. REQUIP XL [Suspect]
     Indication: PARKINSON'S DISEASE
     Route: 048
  2. TEMAZEPAM [Concomitant]
     Route: 065
  3. STALEVO 100 [Concomitant]
     Route: 065
  4. SELEGILINE HCL [Concomitant]
     Route: 065
  5. MADOPAR [Concomitant]
     Route: 065
  6. REQUIP [Concomitant]
     Indication: PARKINSON'S DISEASE
     Route: 065

REACTIONS (1)
  - PSYCHOTIC DISORDER [None]
